FAERS Safety Report 7903387-8 (Version None)
Quarter: 2011Q4

REPORT INFORMATION
  Report Type: 
  Country: None (occurrence: None)
  Receive Date: 20111108
  Receipt Date: 20111108
  Transmission Date: 20120403
  Serious: No
  Sender: FDA-Public Use
  Company Number: None

PATIENT
  Sex: Female

DRUGS (1)
  1. VENLAFAXINE HCL EXTENDED-RELEASE [Suspect]

REACTIONS (4)
  - DRUG EFFECT DECREASED [None]
  - DEPRESSION [None]
  - FATIGUE [None]
  - MEDICATION RESIDUE [None]
